FAERS Safety Report 7141518-0 (Version None)
Quarter: 2010Q4

REPORT INFORMATION
  Report Type: 
  Country: None (occurrence: None)
  Receive Date: 20101126
  Receipt Date: 20101112
  Transmission Date: 20110411
  Serious: Yes (Hospitalization)
  Sender: FDA-Public Use
  Company Number: 1000005415

PATIENT
  Age: 75 Year
  Sex: Female
  Weight: 60 kg

DRUGS (5)
  1. CITALOPRAM HYDROBROMIDE [Suspect]
     Indication: NORMAL PRESSURE HYDROCEPHALUS
     Dosage: 20 MG (20 MG, 1 IN 1 D), ORAL
     Route: 048
     Dates: start: 20080201, end: 20081201
  2. RAMIPRIL [Suspect]
     Indication: HYPERTENSION
     Dosage: 10 MG (10 MG, 1 IN 1 D), ORAL
     Route: 048
     Dates: start: 20060601
  3. BISOPROLOL/HYDROCHLOROTHIAZIDE (BISOPROLOL, HYDROCHLOROTHIAZIDE) (TABL [Suspect]
     Indication: HYPERTENSION
     Dosage: 5 MG/12.5 MG (1 IN 1 D), ORAL
     Route: 048
     Dates: start: 20060601, end: 20081201
  4. MELPERONE (MELPERONE) (25 MILLIGRAM, TABLETS) (MELPERONE) [Concomitant]
  5. METFORMIN (METFORMIN) (TABLETS) (METFORMIN) [Concomitant]

REACTIONS (6)
  - DEHYDRATION [None]
  - DIARRHOEA [None]
  - GASTROINTESTINAL HAEMORRHAGE [None]
  - HYPOKALAEMIA [None]
  - HYPONATRAEMIA [None]
  - OFF LABEL USE [None]
